FAERS Safety Report 25411493 (Version 1)
Quarter: 2025Q2

REPORT INFORMATION
  Report Type: Spontaneous
  Country: US (occurrence: US)
  Receive Date: 20250609
  Receipt Date: 20250609
  Transmission Date: 20250717
  Serious: Yes (Other)
  Sender: SPECGX
  Company Number: US-SPECGX-T202401771

PATIENT
  Sex: Female
  Weight: 87 kg

DRUGS (10)
  1. ACETAMINOPHEN\HYDROCODONE [Suspect]
     Active Substance: ACETAMINOPHEN\HYDROCODONE
     Indication: Spinal pain
     Route: 048
  2. ACETAMINOPHEN\HYDROCODONE [Suspect]
     Active Substance: ACETAMINOPHEN\HYDROCODONE
     Indication: Arthralgia
     Route: 048
     Dates: start: 20240723, end: 20240816
  3. ACETAMINOPHEN\HYDROCODONE [Suspect]
     Active Substance: ACETAMINOPHEN\HYDROCODONE
     Route: 065
  4. ACETAMINOPHEN\HYDROCODONE [Suspect]
     Active Substance: ACETAMINOPHEN\HYDROCODONE
     Route: 065
  5. TYLENOL [Concomitant]
     Active Substance: ACETAMINOPHEN
     Indication: Arthralgia
     Route: 065
     Dates: start: 20240722
  6. TYLENOL [Concomitant]
     Active Substance: ACETAMINOPHEN
     Indication: Spinal pain
  7. MELOXICAM [Concomitant]
     Active Substance: MELOXICAM
     Indication: Product used for unknown indication
     Route: 065
  8. METFORMIN [Concomitant]
     Active Substance: METFORMIN HYDROCHLORIDE
     Indication: Diabetes mellitus
     Route: 065
  9. LISINOPRIL [Concomitant]
     Active Substance: LISINOPRIL
     Indication: Hypertension
     Route: 065
  10. IBUPROFEN [Concomitant]
     Active Substance: IBUPROFEN
     Indication: Pain
     Route: 065

REACTIONS (16)
  - Mental impairment [Recovering/Resolving]
  - Impaired driving ability [Recovering/Resolving]
  - Feeling jittery [Recovering/Resolving]
  - Feeling abnormal [Recovering/Resolving]
  - Nervousness [Recovering/Resolving]
  - Illness [Recovering/Resolving]
  - Euphoric mood [Recovering/Resolving]
  - Insomnia [Recovering/Resolving]
  - Sinusitis [Recovering/Resolving]
  - Dehydration [Recovering/Resolving]
  - Feeling hot [Recovering/Resolving]
  - Heart rate increased [Recovering/Resolving]
  - Inappropriate schedule of product administration [Unknown]
  - Suspected counterfeit product [Unknown]
  - Product physical issue [Unknown]
  - Wrong technique in product usage process [Unknown]

NARRATIVE: CASE EVENT DATE: 20240101
